FAERS Safety Report 8800788 (Version 1)
Quarter: 2012Q4

REPORT INFORMATION
  Report Type: Report from Study
  Country: SE (occurrence: SE)
  Receive Date: 20120921
  Receipt Date: 20120921
  Transmission Date: 20130627
  Serious: Yes (Hospitalization)
  Sender: FDA-Public Use
  Company Number: SE-TEVA-360051ISR

PATIENT

DRUGS (4)
  1. OXALIPLATIN [Suspect]
     Indication: COLORECTAL CANCER METASTATIC
     Dates: start: 20111010, end: 20111109
  2. FLUOROURACIL [Suspect]
     Indication: COLORECTAL CANCER METASTATIC
     Dates: start: 20111010, end: 20111109
  3. BEVACIZUMAB [Suspect]
     Indication: COLORECTAL CANCER METASTATIC
     Dates: start: 20111010, end: 20111109
  4. LEVOFOLINATE [Suspect]
     Indication: COLORECTAL CANCER METASTATIC
     Dates: start: 20111010, end: 20111109

REACTIONS (2)
  - Diarrhoea [Recovered/Resolved]
  - Hypovolaemia [Unknown]
